FAERS Safety Report 9943582 (Version 2)
Quarter: 2014Q1

REPORT INFORMATION
  Report Type: Report from Study
  Country: US (occurrence: US)
  Receive Date: 20140303
  Receipt Date: 20140303
  Transmission Date: 20141002
  Serious: No
  Sender: FDA-Public Use
  Company Number: US-ABBVIE-12P-163-0996147-00

PATIENT
  Age: 22 Year
  Sex: Male

DRUGS (3)
  1. HUMIRA [Suspect]
     Indication: CROHN^S DISEASE
     Dates: start: 20120930, end: 20120930
  2. HUMIRA [Suspect]
     Dates: start: 20121014
  3. HUMIRA [Suspect]

REACTIONS (1)
  - Alopecia [Recovering/Resolving]
